FAERS Safety Report 9196740 (Version 2)
Quarter: 2014Q1

REPORT INFORMATION
  Report Type: Spontaneous
  Country: US (occurrence: US)
  Receive Date: 20130328
  Receipt Date: 20140207
  Transmission Date: 20141002
  Serious: Yes (Other)
  Sender: FDA-Public Use
  Company Number: US-BAYER-2013-038292

PATIENT
  Age: 29 Year
  Sex: Female
  Weight: 58.96 kg

DRUGS (4)
  1. YAZ [Suspect]
  2. YASMIN [Suspect]
  3. OCELLA [Suspect]
  4. ALBUTEROL [Concomitant]
     Dosage: UNK
     Route: 045

REACTIONS (5)
  - Gallbladder injury [None]
  - Biliary dyskinesia [None]
  - Pain [None]
  - Injury [None]
  - Pain [None]
